FAERS Safety Report 8458240-0 (Version None)
Quarter: 2012Q2

REPORT INFORMATION
  Report Type: 
  Country: None (occurrence: None)
  Receive Date: 20120622
  Receipt Date: 20120614
  Transmission Date: 20120825
  Serious: Yes (Death, Life-Threatening, Hospitalization)
  Sender: FDA-Public Use
  Company Number: CN-FRI-1000025366

PATIENT
  Sex: Male
  Weight: 75 kg

DRUGS (6)
  1. ROFLUMILAST (DOUBLE-BLIND) [Suspect]
     Indication: CHRONIC OBSTRUCTIVE PULMONARY DISEASE
     Route: 048
     Dates: start: 20110916, end: 20111029
  2. ALBUTEROL [Concomitant]
     Route: 055
     Dates: start: 20110815, end: 20111027
  3. ROFLUMILAST [Suspect]
     Indication: CHRONIC OBSTRUCTIVE PULMONARY DISEASE
     Route: 048
     Dates: start: 20110916, end: 20111029
  4. TIOTROPIUM BROMIDE [Concomitant]
     Indication: CHRONIC OBSTRUCTIVE PULMONARY DISEASE
     Route: 055
     Dates: start: 20080101
  5. ROFLUMILAST (SINGLE-BLIND PLACEBO) [Concomitant]
     Dates: start: 20110817, end: 20110915
  6. TRADITIONAL CHINESE MEDICINE [Concomitant]
     Route: 048

REACTIONS (2)
  - HEPATITIS B [None]
  - LIVER INJURY [None]
